FAERS Safety Report 24671182 (Version 1)
Quarter: 2024Q4

REPORT INFORMATION
  Report Type: Spontaneous
  Country: US (occurrence: None)
  Receive Date: 20241127
  Receipt Date: 20241127
  Transmission Date: 20250115
  Serious: Yes (Death)
  Sender: Public
  Company Number: None

PATIENT
  Age: 77 Year
  Sex: Male
  Weight: 80.3 kg

DRUGS (3)
  1. ERIVEDGE [Suspect]
     Active Substance: VISMODEGIB
     Indication: Basal cell carcinoma
     Dosage: FREQUENCY : DAILY;?
     Route: 048
     Dates: start: 20240305, end: 20241126
  2. XARELTO [Concomitant]
     Active Substance: RIVAROXABAN
  3. MEN^S ONE A DAY [Concomitant]

REACTIONS (5)
  - Completed suicide [None]
  - Intentional self-injury [None]
  - Gun shot wound [None]
  - Pain [None]
  - Dysphagia [None]

NARRATIVE: CASE EVENT DATE: 20241126
